FAERS Safety Report 8173740-9 (Version None)
Quarter: 2012Q1

REPORT INFORMATION
  Report Type: 
  Country: None (occurrence: None)
  Receive Date: 20120229
  Receipt Date: 20120223
  Transmission Date: 20120608
  Serious: Yes (Other)
  Sender: FDA-Public Use
  Company Number: CA-AMGEN-CANSP2012009751

PATIENT
  Age: 28 Year
  Sex: Female
  Weight: 91 kg

DRUGS (21)
  1. ARANESP [Suspect]
     Indication: NEPHROPATHY
     Dosage: 150 MUG, QWK
     Route: 058
     Dates: end: 20120213
  2. TUMS PLUS [Concomitant]
     Indication: BLOOD PHOSPHORUS ABNORMAL
     Dosage: 1500 MUG, TID
     Route: 048
     Dates: start: 20111006
  3. METOPROLOL SUCCINATE [Concomitant]
     Indication: HYPERTENSION
     Dosage: 50 MG, BID
     Route: 048
     Dates: start: 20111018
  4. NIFEDIPINE [Concomitant]
     Indication: HYPERTENSION
     Dosage: 60 MG, QD
     Route: 048
     Dates: start: 20111006
  5. BETAMETHASONE W/GENTAMICIN [Concomitant]
     Dosage: UNK
     Route: 061
     Dates: start: 20081204
  6. IMOVANE [Concomitant]
     Indication: SLEEP DISORDER
     Dosage: 5 MG, QD
     Route: 048
     Dates: start: 20110303
  7. ARANESP [Suspect]
     Indication: RENAL FAILURE CHRONIC
     Dosage: 100 MUG, UNK
     Route: 058
  8. CALCITRIOL [Concomitant]
     Indication: HYPERPARATHYROIDISM
     Dosage: 1 MUG, 3 TIMES/WK
     Route: 048
     Dates: start: 20110303
  9. REPLAVITE                          /00058902/ [Concomitant]
     Dosage: UNK UNK, QD
     Route: 048
     Dates: start: 20071029
  10. COUMADIN [Concomitant]
     Indication: CEREBROVASCULAR ACCIDENT
     Dosage: 7.5 MG, QD
     Route: 048
     Dates: start: 20110825
  11. ASPIRIN [Concomitant]
     Dosage: 81 MG, QD
     Route: 048
     Dates: start: 20100826
  12. PREDNISONE TAB [Concomitant]
     Indication: ARTHRALGIA
     Dosage: 10 MG, QD
     Dates: start: 20120216
  13. VITAMIN B12                        /00056201/ [Concomitant]
     Dosage: UNK UNK, QD
     Route: 048
     Dates: start: 20110106
  14. ACETAMINOPHEN W/ CODEINE [Concomitant]
     Dosage: 30 MG, PRN
     Dates: start: 20110421
  15. BIFERA [Concomitant]
     Indication: IRON DEFICIENCY
     Dosage: 11 MG, TID
     Route: 048
     Dates: start: 20111020
  16. FOLIC ACID [Concomitant]
     Dosage: UNK UNK, QD
     Route: 048
     Dates: start: 20111020
  17. SPIRONOLACTONE [Concomitant]
     Indication: BLOOD POTASSIUM DECREASED
  18. ARANESP [Suspect]
     Indication: ANAEMIA
     Dosage: 60 MUG, UNK
     Dates: start: 20071029
  19. PANTOPRAZOLE SODIUM [Concomitant]
     Indication: GASTROOESOPHAGEAL REFLUX DISEASE
     Dosage: 40 MG, BID
     Route: 048
     Dates: start: 20101118
  20. CELECOXIB [Concomitant]
     Indication: ARTHRALGIA
     Dosage: 100 MG, PRN
     Dates: start: 20111124
  21. SPIRONOLACTONE [Concomitant]
     Indication: HYPERTENSION
     Dosage: 25 MG, QD
     Route: 048
     Dates: start: 20111124

REACTIONS (4)
  - CEREBROVASCULAR ACCIDENT [None]
  - TRANSIENT ISCHAEMIC ATTACK [None]
  - APLASIA PURE RED CELL [None]
  - DRUG INEFFECTIVE [None]
